FAERS Safety Report 6715733-1 (Version None)
Quarter: 2010Q2

REPORT INFORMATION
  Report Type: 
  Country: None (occurrence: None)
  Receive Date: 20100426
  Receipt Date: 20100111
  Transmission Date: 20101027
  Serious: Yes (Hospitalization, Other)
  Sender: FDA-Public Use
  Company Number: 2008BI008703

PATIENT
  Age: 34 Year
  Sex: Female
  Weight: 97.5234 kg

DRUGS (4)
  1. TYSABRI [Suspect]
     Indication: MULTIPLE SCLEROSIS
     Dosage: 300 MG;QM;IV
     Route: 042
     Dates: start: 20061128, end: 20091118
  2. AVONEX [Concomitant]
  3. BENADRYL [Concomitant]
  4. NORCO [Concomitant]

REACTIONS (16)
  - ADVERSE DRUG REACTION [None]
  - ANAPHYLACTIC REACTION [None]
  - DISORIENTATION [None]
  - DRUG SPECIFIC ANTIBODY PRESENT [None]
  - FATIGUE [None]
  - HYPERSENSITIVITY [None]
  - INFLUENZA [None]
  - MIGRAINE [None]
  - MOBILITY DECREASED [None]
  - MULTIPLE SCLEROSIS RELAPSE [None]
  - SENSORY LOSS [None]
  - SPEECH DISORDER [None]
  - VASOCONSTRICTION [None]
  - VASODILATATION [None]
  - VISION BLURRED [None]
  - WEIGHT INCREASED [None]
